FAERS Safety Report 15582612 (Version 1)
Quarter: 2018Q4

REPORT INFORMATION
  Report Type: Spontaneous
  Country: US (occurrence: US)
  Receive Date: 20181030
  Receipt Date: 20181030
  Transmission Date: 20190205
  Serious: No
  Sender: FDA-Public Use
  Company Number: None

PATIENT
  Sex: Female

DRUGS (1)
  1. NORDITROPIN [Suspect]
     Active Substance: SOMATROPIN
     Indication: HYPOPITUITARISM
     Dosage: ?          OTHER STRENGTH:10MG/1.5M;OTHER FREQUENCY:EVERY 6 DAYS;?
     Route: 058
     Dates: start: 201601

REACTIONS (3)
  - Therapy cessation [None]
  - Pain in extremity [None]
  - Fall [None]
